FAERS Safety Report 4824793-4 (Version None)
Quarter: 2005Q4

REPORT INFORMATION
  Report Type: 
  Country: None (occurrence: None)
  Receive Date: 20051014
  Receipt Date: 20050822
  Transmission Date: 20060501
  Serious: No
  Sender: FDA-Public Use
  Company Number: 2005SP002452

PATIENT
  Age: 74 Year
  Sex: Female

DRUGS (5)
  1. LUNESTA [Suspect]
     Indication: INSOMNIA
     Dosage: 2 MG;HS;ORAL
     Route: 048
     Dates: start: 20050810, end: 20050819
  2. THYROID TAB [Concomitant]
  3. METOPROLOL [Concomitant]
  4. ZANAFLEX [Concomitant]
  5. DIURETICS [Concomitant]

REACTIONS (3)
  - HEART RATE IRREGULAR [None]
  - MIDDLE INSOMNIA [None]
  - SLEEP DISORDER [None]
